FAERS Safety Report 13998671 (Version 2)
Quarter: 2017Q4

REPORT INFORMATION
  Report Type: Spontaneous
  Country: US (occurrence: US)
  Receive Date: 20170922
  Receipt Date: 20171019
  Transmission Date: 20180321
  Serious: No
  Sender: FDA-Public Use
  Company Number: US-GLAXOSMITHKLINE-US2017GSK145478

PATIENT
  Sex: Female
  Weight: 70.3 kg

DRUGS (2)
  1. SUMATRIPTAN (SUMATRIPTAN SUCCINATE) TABLET [Concomitant]
     Active Substance: SUMATRIPTAN
     Indication: MIGRAINE
     Dosage: 1 DF, PRN
  2. SUMATRIPTAN (SUMATRIPTAN SUCCINATE) SOLUTION FOR INJECTION IN PRE-FILL [Suspect]
     Active Substance: SUMATRIPTAN
     Indication: MIGRAINE
     Dosage: 1 DF, PRN
     Route: 042
     Dates: start: 2007

REACTIONS (4)
  - Device issue [Unknown]
  - Drug effect incomplete [Unknown]
  - Drug ineffective [Unknown]
  - Product quality issue [Unknown]
